FAERS Safety Report 18960533 (Version 3)
Quarter: 2021Q1

REPORT INFORMATION
  Report Type: Spontaneous
  Country: GB (occurrence: GB)
  Receive Date: 20210302
  Receipt Date: 20210326
  Transmission Date: 20210420
  Serious: Yes (Other)
  Sender: FDA-Public Use
  Company Number: GB-MYLANLABS-2021M1012076

PATIENT
  Age: 61 Year
  Sex: Female
  Weight: 54 kg

DRUGS (8)
  1. VENLAFAXINE [Interacting]
     Active Substance: VENLAFAXINE HYDROCHLORIDE
     Dosage: 225 MILLIGRAM, QD
  2. AMISULPRIDE [Concomitant]
     Active Substance: AMISULPRIDE
     Dosage: UNK
  3. CLONAZEPAM. [Concomitant]
     Active Substance: CLONAZEPAM
     Dosage: UNK
     Dates: end: 20201007
  4. VENLAFAXINE [Suspect]
     Active Substance: VENLAFAXINE HYDROCHLORIDE
     Indication: MAJOR DEPRESSION
     Dosage: 75 MILLIGRAM, QD
     Route: 048
     Dates: start: 20201204
  5. PHENYTOIN SODIUM. [Interacting]
     Active Substance: PHENYTOIN SODIUM
     Indication: EPILEPSY
     Dosage: 300 MILLIGRAM
     Route: 048
  6. FOLIC ACID. [Concomitant]
     Active Substance: FOLIC ACID
     Dosage: UNK
  7. LORAZEPAM. [Concomitant]
     Active Substance: LORAZEPAM
     Dosage: UNK
  8. SERTRALINE [Concomitant]
     Active Substance: SERTRALINE HYDROCHLORIDE
     Dosage: UNK
     Dates: end: 20201204

REACTIONS (6)
  - Toxicity to various agents [Unknown]
  - Ataxia [Unknown]
  - Drug interaction [Recovered/Resolved]
  - Gait disturbance [Unknown]
  - Incontinence [Unknown]
  - Confusional state [Unknown]

NARRATIVE: CASE EVENT DATE: 20201204
